FAERS Safety Report 5643447-8 (Version None)
Quarter: 2008Q1

REPORT INFORMATION
  Report Type: 
  Country: None (occurrence: None)
  Receive Date: 20080228
  Receipt Date: 20080215
  Transmission Date: 20080703
  Serious: Yes (Hospitalization)
  Sender: FDA-Public Use
  Company Number: FR-AMGEN-UK258246

PATIENT
  Sex: Female

DRUGS (1)
  1. KEPIVANCE [Suspect]
     Indication: MUCOSAL INFLAMMATION
     Dates: start: 20071107, end: 20071122

REACTIONS (3)
  - ERYTHEMA [None]
  - PIGMENTATION DISORDER [None]
  - SKIN LESION [None]
